FAERS Safety Report 18713090 (Version 1)
Quarter: 2021Q1

REPORT INFORMATION
  Report Type: Report from Study
  Country: US (occurrence: US)
  Receive Date: 20210107
  Receipt Date: 20210107
  Transmission Date: 20210419
  Serious: Yes (Hospitalization)
  Sender: FDA-Public Use
  Company Number: US-ALVOGEN-2020-ALVOGEN-115246

PATIENT
  Age: 35 Year
  Sex: Male
  Weight: 72.12 kg

DRUGS (1)
  1. THYRO?TABS [Suspect]
     Active Substance: LEVOTHYROXINE SODIUM
     Indication: PRODUCT USED FOR UNKNOWN INDICATION
     Dosage: TAKEN ONCE
     Route: 048
     Dates: start: 20200820, end: 20200820

REACTIONS (1)
  - Jaw fracture [Not Recovered/Not Resolved]

NARRATIVE: CASE EVENT DATE: 20201027
